FAERS Safety Report 7037792-1 (Version None)
Quarter: 2010Q4

REPORT INFORMATION
  Report Type: 
  Country: None (occurrence: None)
  Receive Date: 20101011
  Receipt Date: 20101006
  Transmission Date: 20110411
  Serious: Yes (Other)
  Sender: FDA-Public Use
  Company Number: AU-WYE-G06599810

PATIENT
  Sex: Male

DRUGS (3)
  1. EFFEXOR XR [Suspect]
     Dosage: 75MG DAILY
     Dates: start: 20100101
  2. BETALOC [Concomitant]
  3. SINEMET [Concomitant]
     Dosage: 100/25 TWICE DAILY

REACTIONS (2)
  - CONCOMITANT DISEASE PROGRESSION [None]
  - PARKINSON'S DISEASE [None]
